FAERS Safety Report 9161905 (Version 2)
Quarter: 2013Q1

REPORT INFORMATION
  Report Type: Spontaneous
  Country: US (occurrence: None)
  Receive Date: 20130221
  Receipt Date: 20130227
  Transmission Date: 20140127
  Serious: Yes (Other)
  Sender: FDA-Public Use
  Company Number: AUR-APL-2013-01448

PATIENT
  Age: 54 Year
  Sex: Male
  Weight: 113 kg

DRUGS (5)
  1. RAMIPRIL (RAMIPRIL) [Suspect]
     Indication: HYPERTENSION
     Dates: start: 2009
  2. METOPROLOL (METOPROLOL) [Suspect]
     Indication: HYPERTENSION
     Dates: start: 2009
  3. PRIMATENE [Suspect]
     Indication: DYSPNOEA
     Dosage: EVERY 4-6 HOURS
     Dates: start: 20130202, end: 20130202
  4. PLAVIX (CLOPIDOGREL) [Concomitant]
  5. PRAVASTATIN (PRAVASTATIN) [Concomitant]

REACTIONS (2)
  - Blood pressure increased [None]
  - Apparent death [None]
